FAERS Safety Report 9135294 (Version 2)
Quarter: 2013Q2

REPORT INFORMATION
  Report Type: Spontaneous
  Country: US (occurrence: US)
  Receive Date: 20130304
  Receipt Date: 20130417
  Transmission Date: 20140414
  Serious: Yes (Death)
  Sender: FDA-Public Use
  Company Number: US-ASTELLAS-2013US002317

PATIENT
  Age: 75 Year
  Sex: Female

DRUGS (14)
  1. PROGRAF [Suspect]
     Indication: RENAL TRANSPLANT
     Dosage: 1.5 MG, BID
     Route: 048
     Dates: start: 20121030, end: 20121231
  2. PROGRAF [Suspect]
     Dosage: 1 MG IN THE MORNING AND 1.5 MG IN THE EVENING
     Route: 048
  3. XANAX [Concomitant]
     Indication: PRODUCT USED FOR UNKNOWN INDICATION
     Dosage: 0.25 MG, PRN
     Route: 048
  4. AMIODARONE [Concomitant]
     Indication: CARDIAC DISORDER
     Dosage: 100 MG, BID
     Route: 048
  5. AMLODIPINE [Concomitant]
     Indication: PRODUCT USED FOR UNKNOWN INDICATION
     Dosage: 10 MG, UID/QD
     Route: 048
  6. CALCIUM CARBONATE [Concomitant]
     Indication: PRODUCT USED FOR UNKNOWN INDICATION
     Dosage: 1000 MG, BID
     Route: 048
  7. COREG [Concomitant]
     Indication: BLOOD PRESSURE
     Dosage: 6.25 MG, BID
     Route: 048
  8. DAPSONE [Concomitant]
     Indication: PRODUCT USED FOR UNKNOWN INDICATION
     Dosage: 100 MG, UID/QD
     Route: 048
  9. COLACE [Concomitant]
     Indication: PRODUCT USED FOR UNKNOWN INDICATION
     Dosage: 100 MG, BID
     Route: 048
  10. FERROUS SULFATE [Concomitant]
     Indication: PRODUCT USED FOR UNKNOWN INDICATION
     Dosage: 325 MG, BID
     Route: 048
  11. NOVOLIN R [Concomitant]
     Indication: BLOOD GLUCOSE
     Dosage: UNK
     Route: 058
  12. MYCOPHENOLATE MOFETIL [Concomitant]
     Indication: PRODUCT USED FOR UNKNOWN INDICATION
     Dosage: 250 MG, QID
     Route: 048
  13. PRILOSEC                           /00661201/ [Concomitant]
     Indication: ANTACID THERAPY
     Dosage: 20 MG, BID
     Route: 048
  14. SIMVASTATIN [Concomitant]
     Indication: PRODUCT USED FOR UNKNOWN INDICATION
     Dosage: 20 MG, QHS
     Route: 048

REACTIONS (3)
  - Cardio-respiratory arrest [Fatal]
  - Renal failure [Fatal]
  - Sepsis [Fatal]
